FAERS Safety Report 24769663 (Version 2)
Quarter: 2025Q1

REPORT INFORMATION
  Report Type: Spontaneous
  Country: JP (occurrence: JP)
  Receive Date: 20241224
  Receipt Date: 20250325
  Transmission Date: 20250408
  Serious: Yes (Death, Other)
  Sender: BRISTOL-MYERS SQUIBB COMPANY
  Company Number: JP-ONO-2024JP025819

PATIENT

DRUGS (1)
  1. OPDIVO [Suspect]
     Active Substance: NIVOLUMAB
     Indication: Non-small cell lung cancer
     Route: 041

REACTIONS (4)
  - Immune-mediated enterocolitis [Fatal]
  - Immune-mediated hypothyroidism [Fatal]
  - Immune thrombocytopenia [Fatal]
  - Organising pneumonia [Fatal]
